FAERS Safety Report 10010271 (Version 2)
Quarter: 2014Q2

REPORT INFORMATION
  Report Type: Spontaneous
  Country: US (occurrence: US)
  Receive Date: 20140314
  Receipt Date: 20140407
  Transmission Date: 20141212
  Serious: Yes (Other)
  Sender: FDA-Public Use
  Company Number: US-ROCHE-1363716

PATIENT
  Age: 58 Year
  Sex: Female
  Weight: 106.36 kg

DRUGS (13)
  1. XOLAIR [Suspect]
     Indication: ASTHMA
     Route: 058
     Dates: start: 20140210
  2. LORAZEPAM [Concomitant]
     Route: 065
  3. AMBIEN [Concomitant]
     Route: 065
  4. EPIPEN [Concomitant]
     Route: 065
  5. PANTOPRAZOLE [Concomitant]
     Route: 065
  6. PROPRANOLOL [Concomitant]
     Route: 065
  7. FUROSEMIDE [Concomitant]
     Route: 065
  8. CRESTOR [Concomitant]
     Route: 065
  9. ADVAIR [Concomitant]
     Dosage: 500/50 UNIT NOT REPORTED
     Route: 065
     Dates: start: 20131213
  10. MONTELUKAST [Concomitant]
     Route: 065
  11. SINGULAIR [Concomitant]
     Indication: ASTHMA
     Route: 065
     Dates: start: 20131129
  12. PREDNISOLONE [Concomitant]
     Route: 065
     Dates: start: 20140204, end: 20140204
  13. GATIFLOXACIN [Concomitant]
     Dosage: LUPI
     Route: 065
     Dates: start: 20120202, end: 20140208

REACTIONS (2)
  - Peripheral swelling [Recovered/Resolved]
  - Cataract [Unknown]
